FAERS Safety Report 21297515 (Version 1)
Quarter: 2022Q3

REPORT INFORMATION
  Report Type: Spontaneous
  Country: US (occurrence: US)
  Receive Date: 20220906
  Receipt Date: 20220906
  Transmission Date: 20221026
  Serious: No
  Sender: FDA-Public Use
  Company Number: US-drreddys-SPO/USA/22/0154099

PATIENT
  Age: 17 Year
  Sex: Female

DRUGS (1)
  1. ZENATANE [Suspect]
     Active Substance: ISOTRETINOIN
     Indication: Acne
     Dosage: RMA ISSUE DATE: 31 JULY 2022, 01:18:15 PM; 07 MAY 2022, 01:23:07 PM; 31 MARCH 2022, 03:40:47 PM; 01

REACTIONS (1)
  - Treatment noncompliance [Unknown]
